FAERS Safety Report 7985096-2 (Version None)
Quarter: 2011Q4

REPORT INFORMATION
  Report Type: 
  Country: None (occurrence: None)
  Receive Date: 20111216
  Receipt Date: 20111213
  Transmission Date: 20120403
  Serious: Yes (Death, Other)
  Sender: FDA-Public Use
  Company Number: PHHY2009MX57890

PATIENT
  Age: 81 Year
  Sex: Female

DRUGS (2)
  1. CARBIDOPA + LEVODOPA [Concomitant]
  2. STALEVO 100 [Suspect]
     Dosage: 1 DF, QD
     Route: 048

REACTIONS (2)
  - CARDIAC ARREST [None]
  - COAGULATION FACTOR DECREASED [None]
